FAERS Safety Report 4293315-1 (Version None)
Quarter: 2004Q1

REPORT INFORMATION
  Report Type: 
  Country: None (occurrence: None)
  Receive Date: 20040126
  Receipt Date: 20031022
  Transmission Date: 20041129
  Serious: No
  Sender: FDA-Public Use
  Company Number: USA031050581

PATIENT
  Age: 70 Year
  Sex: Male

DRUGS (6)
  1. FORTEO [Suspect]
     Indication: OSTEOPOROSIS
  2. POTASSIUM [Concomitant]
  3. AMIODARONE HCL [Concomitant]
  4. CELEBREX [Concomitant]
  5. COSADEX (BICALUTAMIDE) [Concomitant]
  6. OXYCONTN (OXCODONE HYDROCHLORIDE) [Concomitant]

REACTIONS (2)
  - BONE PAIN [None]
  - NAUSEA [None]
